FAERS Safety Report 20862724 (Version 2)
Quarter: 2022Q4

REPORT INFORMATION
  Report Type: Spontaneous
  Country: US (occurrence: US)
  Receive Date: 20220523
  Receipt Date: 20221020
  Transmission Date: 20230113
  Serious: Yes (Other)
  Sender: FDA-Public Use
  Company Number: US-BRAINTREE LABORATORIES, INC.-2022BTE00390

PATIENT
  Age: 73 Year
  Sex: Female

DRUGS (11)
  1. SUPREP BOWEL PREP [Suspect]
     Active Substance: MAGNESIUM SULFATE\POTASSIUM SULFATE\SODIUM SULFATE
     Indication: Capsule endoscopy
     Dosage: 1 X 6 OZ. BOTTLE, 1X
     Route: 048
     Dates: start: 20211101, end: 20211101
  2. DEVICE [Suspect]
     Active Substance: DEVICE
     Indication: Cataract
     Dosage: UNK, LEFT AND RIGHT EYES
     Dates: start: 20220210, end: 20220302
  3. ALEVE [Concomitant]
     Active Substance: NAPROXEN SODIUM
  4. LORAZEPAM [Concomitant]
     Active Substance: LORAZEPAM
  5. VYVANSE [Concomitant]
     Active Substance: LISDEXAMFETAMINE DIMESYLATE
  6. MYRBETRIQ [Concomitant]
     Active Substance: MIRABEGRON
  7. ZOLOFT [Concomitant]
     Active Substance: SERTRALINE HYDROCHLORIDE
     Dosage: 25 MG
  8. ROSUVASTATIN [Concomitant]
     Active Substance: ROSUVASTATIN
     Dosage: 5 MG
  9. UNSPECIFIED MEDICATION TO HOLD BOWELS [Concomitant]
  10. COVID VACCINE [Concomitant]
  11. COVID VACCINE BOOSTER [Concomitant]

REACTIONS (9)
  - Cataract [Recovered/Resolved]
  - Dizziness [Unknown]
  - Blood pressure increased [Recovered/Resolved]
  - Diplopia [Not Recovered/Not Resolved]
  - Dehydration [Unknown]
  - Blood urea increased [Unknown]
  - Fibromyalgia [Unknown]
  - Nausea [Recovered/Resolved]
  - Vomiting [Recovered/Resolved]

NARRATIVE: CASE EVENT DATE: 20211101
